FAERS Safety Report 13682476 (Version 1)
Quarter: 2017Q2

REPORT INFORMATION
  Report Type: Spontaneous
  Country: US (occurrence: US)
  Receive Date: 20170623
  Receipt Date: 20170623
  Transmission Date: 20170830
  Serious: No
  Sender: FDA-Public Use
  Company Number: US-IPSEN BIOPHARMACEUTICALS, INC.-2016-07038

PATIENT
  Sex: Female
  Weight: 53.07 kg

DRUGS (4)
  1. NATUROPHATIC VERSION OF PROGESTERONE [Concomitant]
  2. DYSPORT [Suspect]
     Active Substance: ABOBOTULINUMTOXINA
     Indication: SKIN WRINKLING
     Dosage: 600 IU
     Route: 065
     Dates: start: 2015, end: 2015
  3. DYSPORT [Suspect]
     Active Substance: ABOBOTULINUMTOXINA
     Indication: SKIN WRINKLING
  4. DYSPORT [Suspect]
     Active Substance: ABOBOTULINUMTOXINA
     Indication: PRODUCT USE IN UNAPPROVED INDICATION

REACTIONS (5)
  - Dysphagia [Not Recovered/Not Resolved]
  - Muscle tightness [Unknown]
  - Overdose [Unknown]
  - Hyperventilation [Recovered/Resolved]
  - Weight decreased [Not Recovered/Not Resolved]

NARRATIVE: CASE EVENT DATE: 2015
